FAERS Safety Report 7413178-2 (Version None)
Quarter: 2011Q2

REPORT INFORMATION
  Report Type: 
  Country: None (occurrence: None)
  Receive Date: 20110413
  Receipt Date: 20110406
  Transmission Date: 20111010
  Serious: Yes (Hospitalization)
  Sender: FDA-Public Use
  Company Number: FR-PFIZER INC-2011079343

PATIENT
  Age: 48 Year
  Sex: Female

DRUGS (2)
  1. ACETAMINOPHEN AND TRAMADOL HCL [Suspect]
     Indication: NECK PAIN
     Dosage: UNK
     Route: 048
     Dates: start: 20110303, end: 20110303
  2. INIPOMP [Suspect]
     Dosage: UNK
     Route: 048
     Dates: end: 20110303

REACTIONS (2)
  - TOXIC SKIN ERUPTION [None]
  - SHOCK [None]
